FAERS Safety Report 6332691-2 (Version None)
Quarter: 2009Q3

REPORT INFORMATION
  Report Type: 
  Country: None (occurrence: None)
  Receive Date: 20090828
  Receipt Date: 20090817
  Transmission Date: 20100115
  Serious: Yes (Hospitalization)
  Sender: FDA-Public Use
  Company Number: KR-PFIZER INC-2009251663

PATIENT
  Age: 40 Year

DRUGS (5)
  1. VORICONAZOLE [Suspect]
     Indication: ASPERGILLOSIS
     Dosage: 200 MG, 2X/DAY
     Route: 048
     Dates: start: 20080209, end: 20080311
  2. VORICONAZOLE [Suspect]
     Dosage: 200 MG, 2X/DAY
     Dates: start: 20080319, end: 20080325
  3. NEUTROGIN [Concomitant]
     Dosage: UNK
     Route: 058
     Dates: start: 20080304, end: 20080315
  4. RANITIDINE [Concomitant]
     Indication: OESOPHAGITIS
     Dosage: 150 MG, 2X/DAY
     Route: 048
     Dates: start: 20080215, end: 20080308
  5. CEFIXIME [Concomitant]
     Indication: OESOPHAGITIS
     Dosage: 200 MG, 2X/DAY
     Route: 048
     Dates: start: 20080222, end: 20080308

REACTIONS (1)
  - SEPTIC SHOCK [None]
